FAERS Safety Report 13094874 (Version 2)
Quarter: 2017Q1

REPORT INFORMATION
  Report Type: Spontaneous
  Country: US (occurrence: US)
  Receive Date: 20170106
  Receipt Date: 20170110
  Transmission Date: 20170428
  Serious: Yes (Death)
  Sender: FDA-Public Use
  Company Number: US-ABBVIE-17P-163-1831870-00

PATIENT
  Age: 29 Year
  Sex: Male

DRUGS (1)
  1. VALPROIC ACID. [Suspect]
     Active Substance: VALPROIC ACID
     Indication: SUICIDE ATTEMPT
     Route: 065

REACTIONS (7)
  - Brain oedema [Fatal]
  - Intentional overdose [Fatal]
  - Drug level increased [Fatal]
  - Mental status changes [Fatal]
  - Cerebral haemorrhage [Fatal]
  - Suicide attempt [Fatal]
  - Toxicity to various agents [Fatal]
